FAERS Safety Report 8544801-7 (Version None)
Quarter: 2012Q3

REPORT INFORMATION
  Report Type: 
  Country: None (occurrence: None)
  Receive Date: 20120727
  Receipt Date: 20120718
  Transmission Date: 20120928
  Serious: Yes (Other)
  Sender: FDA-Public Use
  Company Number: US-ABBOTT-12P-163-0958092-00

PATIENT
  Sex: Female
  Weight: 61.29 kg

DRUGS (4)
  1. HUMIRA [Suspect]
     Dates: start: 20120701
  2. MELOXICAM [Concomitant]
     Indication: ANKYLOSING SPONDYLITIS
  3. UNKNOWN MEDICATION [Concomitant]
     Indication: HYPERTENSION
  4. HUMIRA [Suspect]
     Indication: ANKYLOSING SPONDYLITIS
     Dates: start: 20120401

REACTIONS (3)
  - INTERVERTEBRAL DISC INJURY [None]
  - BACK PAIN [None]
  - INTERVERTEBRAL DISC PROTRUSION [None]
